FAERS Safety Report 4300947-0 (Version None)
Quarter: 2004Q1

REPORT INFORMATION
  Report Type: 
  Country: None (occurrence: None)
  Receive Date: 20040219
  Receipt Date: 20040209
  Transmission Date: 20041129
  Serious: Yes (Hospitalization)
  Sender: FDA-Public Use
  Company Number: 2004198513AU

PATIENT
  Sex: Female

DRUGS (6)
  1. ALDACTONE [Suspect]
     Indication: BLOOD PRESSURE
     Dosage: 25 MG
  2. LIPITOR [Concomitant]
  3. LERCANIDIPINE [Concomitant]
  4. PRITOR (TELMISARTAN) [Concomitant]
  5. NEXIUM [Concomitant]
  6. COVERSYL (PERINDOPRIL) [Concomitant]

REACTIONS (7)
  - ABDOMINAL DISTENSION [None]
  - BLOOD PRESSURE INCREASED [None]
  - DIZZINESS [None]
  - DYSPNOEA [None]
  - HYPERVENTILATION [None]
  - SOMNOLENCE [None]
  - UNEVALUABLE EVENT [None]
